FAERS Safety Report 9032559 (Version 1)
Quarter: 2013Q1

REPORT INFORMATION
  Report Type: Spontaneous
  Country: US (occurrence: None)
  Receive Date: 20130109
  Receipt Date: 20130109
  Transmission Date: 20140127
  Serious: Yes (Other)
  Sender: FDA-Public Use
  Company Number: NSR_00766_2013

PATIENT
  Age: 53 Year
  Sex: Male

DRUGS (3)
  1. CLONIDINE [Suspect]
     Indication: FLASHBACK
  2. CLONIDINE [Suspect]
     Indication: SLEEP DISORDER
  3. SERTRALINE [Concomitant]

REACTIONS (1)
  - Hallucination, auditory [None]
